FAERS Safety Report 10095832 (Version 2)
Quarter: 2014Q2

REPORT INFORMATION
  Report Type: Spontaneous
  Country: US (occurrence: US)
  Receive Date: 20140422
  Receipt Date: 20140422
  Transmission Date: 20141212
  Serious: Yes (Other)
  Sender: FDA-Public Use
  Company Number: US-GILEAD-2013-0074489

PATIENT
  Sex: Female

DRUGS (8)
  1. LETAIRIS [Suspect]
     Indication: PULMONARY HYPERTENSION
     Dosage: 10 MG, QD
     Dates: start: 20100813, end: 20130415
  2. LETAIRIS [Suspect]
     Indication: CHRONIC OBSTRUCTIVE PULMONARY DISEASE
  3. LETAIRIS [Suspect]
     Indication: HYPOXIA
  4. SPIRIVA [Concomitant]
     Indication: ASTHMA
     Dates: start: 20130201
  5. ADVAIR [Concomitant]
     Indication: ASTHMA
     Dates: start: 20130201
  6. SYMBICORT [Concomitant]
     Indication: ASTHMA
     Dates: start: 20130201
  7. PROAIR                             /00139502/ [Concomitant]
     Indication: ASTHMA
     Dates: start: 20130201
  8. CARTIA                             /00489702/ [Concomitant]
     Indication: HYPERTENSION
     Dates: start: 20130201

REACTIONS (1)
  - Drug ineffective [Unknown]
